FAERS Safety Report 24775788 (Version 6)
Quarter: 2025Q2

REPORT INFORMATION
  Report Type: Report from Study
  Country: US (occurrence: US)
  Receive Date: 20241226
  Receipt Date: 20250425
  Transmission Date: 20250717
  Serious: Yes (Hospitalization)
  Sender: SUNOVION
  Company Number: US-SUMITOMO PHARMA SWITZERLAND GMBH-2024SPA006300

PATIENT

DRUGS (2)
  1. ORGOVYX [Suspect]
     Active Substance: RELUGOLIX
     Indication: Prostate cancer
     Dosage: 360 MG, SINGLE
     Route: 048
     Dates: start: 20241126, end: 20241126
  2. ORGOVYX [Suspect]
     Active Substance: RELUGOLIX
     Dosage: 120 MG, QD
     Route: 048
     Dates: start: 20241127

REACTIONS (15)
  - Exostosis [Unknown]
  - Dyspepsia [Unknown]
  - Weight decreased [Unknown]
  - Feeling abnormal [Unknown]
  - Dust allergy [Unknown]
  - Cough [Unknown]
  - Nasal congestion [Unknown]
  - Pulmonary mass [Unknown]
  - Sleep disorder [Unknown]
  - Night sweats [Unknown]
  - Somnolence [Unknown]
  - Hot flush [Unknown]
  - Hyperhidrosis [Unknown]
  - Blood glucose increased [Unknown]
  - Fatigue [Unknown]
